FAERS Safety Report 5421066-6 (Version None)
Quarter: 2007Q3

REPORT INFORMATION
  Report Type: 
  Country: None (occurrence: None)
  Receive Date: 20070817
  Receipt Date: 20070809
  Transmission Date: 20080115
  Serious: Yes (Hospitalization, Other)
  Sender: FDA-Public Use
  Company Number: 2007SP012084

PATIENT
  Age: 47 Year
  Sex: Female

DRUGS (4)
  1. RIBAVIRIN [Suspect]
     Indication: HEPATITIS C
     Dosage: PO; PO
     Route: 048
     Dates: start: 20070514, end: 20070701
  2. RIBAVIRIN [Suspect]
     Indication: HEPATITIS C
     Dosage: PO; PO
     Route: 048
     Dates: start: 20070301
  3. PEG-INTRON [Suspect]
     Indication: HEPATITIS C
     Dosage: SC; SC
     Route: 058
     Dates: start: 20070514, end: 20070701
  4. PEG-INTRON [Suspect]
     Indication: HEPATITIS C
     Dosage: SC; SC
     Route: 058
     Dates: start: 20070301

REACTIONS (27)
  - ABASIA [None]
  - ABDOMINAL PAIN UPPER [None]
  - ANGER [None]
  - ANHEDONIA [None]
  - ANXIETY [None]
  - ARTHRALGIA [None]
  - CRYING [None]
  - DECREASED APPETITE [None]
  - DEPRESSION [None]
  - DIABETIC COMA [None]
  - DRUG INEFFECTIVE [None]
  - DRY SKIN [None]
  - GINGIVAL BLEEDING [None]
  - HEADACHE [None]
  - INFUSION SITE MASS [None]
  - INJECTION SITE PAIN [None]
  - INSOMNIA [None]
  - LOSS OF CONSCIOUSNESS [None]
  - MYALGIA [None]
  - NAUSEA [None]
  - NERVOUSNESS [None]
  - PAIN OF SKIN [None]
  - POST PROCEDURAL HAEMORRHAGE [None]
  - PRURITUS [None]
  - SKIN BURNING SENSATION [None]
  - TOOTH SOCKET HAEMORRHAGE [None]
  - VOMITING [None]
